FAERS Safety Report 15990256 (Version 1)
Quarter: 2019Q1

REPORT INFORMATION
  Report Type: Spontaneous
  Country: US (occurrence: US)
  Receive Date: 20190221
  Receipt Date: 20190221
  Transmission Date: 20190418
  Serious: Yes (Disabling, Other)
  Sender: FDA-Public Use
  Company Number: None

PATIENT
  Age: 23 Year
  Sex: Female
  Weight: 67.5 kg

DRUGS (1)
  1. MIRENA [Suspect]
     Active Substance: LEVONORGESTREL
     Indication: CONTRACEPTION
     Dosage: ?          QUANTITY:1 DEVICE;OTHER FREQUENCY:CONTINUOUS;?
     Route: 067
     Dates: start: 20161211, end: 20190131

REACTIONS (6)
  - Drug ineffective [None]
  - Dermatitis [None]
  - Sleep disorder [None]
  - Hypersensitivity [None]
  - Skin weeping [None]
  - Eczema [None]

NARRATIVE: CASE EVENT DATE: 20190101
